FAERS Safety Report 9728087 (Version 1)
Quarter: 2013Q4

REPORT INFORMATION
  Report Type: Spontaneous
  Country: DE (occurrence: None)
  Receive Date: 20131127
  Receipt Date: 20131127
  Transmission Date: 20140711
  Serious: Yes (Life-Threatening, Hospitalization)
  Sender: FDA-Public Use
  Company Number: DSM-2013-01129

PATIENT
  Age: 84 Year
  Sex: Female

DRUGS (4)
  1. VOTUM [Suspect]
     Indication: HYPERTENSION
     Dates: start: 20110107, end: 20130801
  2. METOPROLOL [Suspect]
     Indication: CORONARY ARTERY DISEASE
     Dosage: 100 MG (50 MG, 2 IN 1 D)
     Route: 048
     Dates: end: 20110801
  3. THYROXIN (LEVOTHYROXINE SODIUM) (LEVOTHYROXINE SODIUM) [Concomitant]
  4. ASS (ACETYLSALICYLIC ACID (ACETYLSALICYLIC ACID) [Concomitant]

REACTIONS (5)
  - Abdominal pain upper [None]
  - Vomiting [None]
  - Weight decreased [None]
  - Renal failure acute [None]
  - Dehydration [None]
